FAERS Safety Report 9781790 (Version 2)
Quarter: 2014Q1

REPORT INFORMATION
  Report Type: Report from Study
  Country: GB (occurrence: GB)
  Receive Date: 20131225
  Receipt Date: 20140213
  Transmission Date: 20141002
  Serious: Yes (Hospitalization, Other)
  Sender: FDA-Public Use
  Company Number: GB-ROCHE-1325059

PATIENT
  Age: 75 Year
  Sex: Male

DRUGS (10)
  1. RANIBIZUMAB [Suspect]
     Indication: SPINAL DECOMPRESSION
     Route: 050
     Dates: start: 20110825
  2. RANIBIZUMAB [Suspect]
     Route: 050
     Dates: start: 20130808
  3. VERAPAMIL [Concomitant]
  4. PREDNISOLONE [Concomitant]
     Route: 065
     Dates: start: 1994, end: 20131031
  5. WARFARIN [Concomitant]
     Route: 065
     Dates: start: 1994, end: 20131031
  6. ASACOL [Concomitant]
     Route: 065
     Dates: end: 20131031
  7. AMOXICILLIN [Concomitant]
     Route: 065
     Dates: start: 20130421, end: 20130506
  8. RAMIPRIL [Concomitant]
     Route: 065
     Dates: start: 20130801, end: 20130831
  9. TAMSULOSIN [Concomitant]
     Route: 065
     Dates: start: 20130801, end: 20131031
  10. DIGOXIN [Concomitant]
     Route: 065
     Dates: start: 20130802, end: 20131031

REACTIONS (5)
  - Sciatica [Not Recovered/Not Resolved]
  - Medical device complication [Unknown]
  - Age-related macular degeneration [Recovering/Resolving]
  - Benign prostatic hyperplasia [Not Recovered/Not Resolved]
  - Urethral disorder [Recovering/Resolving]
